FAERS Safety Report 12306363 (Version 1)
Quarter: 2016Q2

REPORT INFORMATION
  Report Type: Spontaneous
  Country: US (occurrence: US)
  Receive Date: 20160426
  Receipt Date: 20160426
  Transmission Date: 20160815
  Serious: No
  Sender: FDA-Public Use
  Company Number: US-TAKEDA-2016TUS006772

PATIENT
  Sex: Male

DRUGS (3)
  1. PREVACID [Suspect]
     Active Substance: LANSOPRAZOLE
     Indication: RENAL INJURY
     Dosage: UNK
     Route: 065
  2. LEVOCARNITINE. [Concomitant]
     Active Substance: LEVOCARNITINE
     Indication: RENAL INJURY
  3. VITAMIN A                          /00056001/ [Concomitant]
     Active Substance: RETINOL
     Indication: RENAL INJURY

REACTIONS (2)
  - Off label use [Unknown]
  - No adverse event [Unknown]
